FAERS Safety Report 5809468-7 (Version None)
Quarter: 2008Q3

REPORT INFORMATION
  Report Type: 
  Country: None (occurrence: None)
  Receive Date: 20080715
  Receipt Date: 20080703
  Transmission Date: 20090109
  Serious: Yes (Other)
  Sender: FDA-Public Use
  Company Number: US-WYE-H04071508

PATIENT
  Sex: Female
  Weight: 59.02 kg

DRUGS (1)
  1. NORPLANT SYSTEM [Suspect]
     Indication: CONTRACEPTION
     Dosage: 6 CAPSULES
     Route: 058
     Dates: start: 20040101

REACTIONS (1)
  - SYNCOPE VASOVAGAL [None]
